FAERS Safety Report 12070993 (Version 1)
Quarter: 2016Q1

REPORT INFORMATION
  Report Type: Spontaneous
  Country: US (occurrence: US)
  Receive Date: 20160211
  Receipt Date: 20160211
  Transmission Date: 20160526
  Serious: Yes (Other)
  Sender: FDA-Public Use
  Company Number: US-BAYER-2016-025523

PATIENT
  Age: 59 Year

DRUGS (1)
  1. BAYER LOW DOSE [Suspect]
     Active Substance: ASPIRIN
     Dosage: UNK, QD
     Dates: start: 20150608

REACTIONS (4)
  - Myocardial infarction [None]
  - Coronary artery occlusion [Not Recovered/Not Resolved]
  - Product use issue [None]
  - Coronary arterial stent insertion [None]

NARRATIVE: CASE EVENT DATE: 20150608
